FAERS Safety Report 10088614 (Version 1)
Quarter: 2014Q2

REPORT INFORMATION
  Report Type: Spontaneous
  Country: US (occurrence: US)
  Receive Date: 20140421
  Receipt Date: 20140421
  Transmission Date: 20141212
  Serious: No
  Sender: FDA-Public Use
  Company Number: US-BIOGENIDEC-2014BI032485

PATIENT
  Age: 60 Year
  Sex: Female

DRUGS (9)
  1. TECFIDERA [Suspect]
     Indication: MULTIPLE SCLEROSIS
     Route: 048
     Dates: start: 201306
  2. BACLOFEN [Concomitant]
  3. VALIUM [Concomitant]
  4. VITAMIN D 1000 [Concomitant]
  5. ECOTRIN [Concomitant]
  6. DIOVAN [Concomitant]
  7. CITALOPRAM HBR [Concomitant]
  8. CALCIUM CARBONATE 500 [Concomitant]
  9. TRAMADOL HCL [Concomitant]

REACTIONS (1)
  - Constipation [Unknown]
